FAERS Safety Report 17742845 (Version 6)
Quarter: 2024Q3

REPORT INFORMATION
  Report Type: Report from Study
  Country: IT (occurrence: IT)
  Receive Date: 20200505
  Receipt Date: 20240930
  Transmission Date: 20241016
  Serious: Yes (Other)
  Sender: ROCHE
  Company Number: IT-ROCHE-2592735

PATIENT
  Age: 31 Year
  Sex: Female
  Weight: 49.0 kg

DRUGS (25)
  1. OCRELIZUMAB [Suspect]
     Active Substance: OCRELIZUMAB
     Indication: Primary progressive multiple sclerosis
     Dosage: 300 MG/250 ML
     Route: 042
     Dates: start: 20200204, end: 20200204
  2. OCRELIZUMAB [Suspect]
     Active Substance: OCRELIZUMAB
     Dosage: 300 MG/250 ML
     Route: 042
     Dates: start: 20200221, end: 20200221
  3. OCRELIZUMAB [Suspect]
     Active Substance: OCRELIZUMAB
     Route: 042
     Dates: start: 20200827, end: 20200827
  4. OCRELIZUMAB [Suspect]
     Active Substance: OCRELIZUMAB
     Route: 042
     Dates: start: 20210302, end: 20210302
  5. OCRELIZUMAB [Suspect]
     Active Substance: OCRELIZUMAB
     Route: 042
     Dates: start: 20210914, end: 20210914
  6. OCRELIZUMAB [Suspect]
     Active Substance: OCRELIZUMAB
     Route: 042
     Dates: start: 20220405, end: 20220405
  7. OCRELIZUMAB [Suspect]
     Active Substance: OCRELIZUMAB
     Route: 042
     Dates: start: 20221115, end: 20221115
  8. OCRELIZUMAB [Suspect]
     Active Substance: OCRELIZUMAB
     Route: 042
     Dates: start: 20200204, end: 20200204
  9. OCRELIZUMAB [Suspect]
     Active Substance: OCRELIZUMAB
     Route: 042
     Dates: start: 20231219, end: 20231219
  10. CETIRIZINE HYDROCHLORIDE [Concomitant]
     Active Substance: CETIRIZINE HYDROCHLORIDE
     Indication: Infusion related reaction
     Route: 048
     Dates: start: 20200204, end: 20200204
  11. CETIRIZINE HYDROCHLORIDE [Concomitant]
     Active Substance: CETIRIZINE HYDROCHLORIDE
     Route: 048
     Dates: start: 20200827, end: 20200827
  12. BETAMETHASONE SODIUM PHOSPHATE [Concomitant]
     Active Substance: BETAMETHASONE SODIUM PHOSPHATE
     Indication: Back pain
     Route: 030
     Dates: start: 20200818, end: 20200823
  13. DICLOFENAC SODIUM [Concomitant]
     Active Substance: DICLOFENAC\DICLOFENAC SODIUM
     Indication: Back pain
     Route: 030
     Dates: start: 20200818, end: 20200823
  14. OMEPRAZOLE [Concomitant]
     Active Substance: OMEPRAZOLE
     Indication: Illness
     Route: 048
     Dates: start: 20200828
  15. OMEPRAZOLE [Concomitant]
     Active Substance: OMEPRAZOLE
     Indication: Dysgeusia
  16. ACETAMINOPHEN [Concomitant]
     Active Substance: ACETAMINOPHEN
     Indication: Premedication
     Dosage: FREQUENCY TEXT:ONCE BEFORE INFUSION
     Route: 048
     Dates: start: 20200204, end: 20200204
  17. ACETAMINOPHEN [Concomitant]
     Active Substance: ACETAMINOPHEN
     Dosage: FREQUENCY TEXT:ONCE BEFORE INFUSION
     Route: 048
     Dates: start: 20200221, end: 20200221
  18. OMEPRAZOLE [Concomitant]
     Active Substance: OMEPRAZOLE
     Indication: Premedication
     Dosage: FREQUENCY TEXT:ONCE BEFORE INFUSION
     Route: 048
     Dates: start: 20200204, end: 20200204
  19. OMEPRAZOLE [Concomitant]
     Active Substance: OMEPRAZOLE
     Dosage: FREQUENCY TEXT:ONCE BEFORE INFUSION
     Route: 048
     Dates: start: 20200221, end: 20200221
  20. METHYLPREDNISOLONE [Concomitant]
     Active Substance: METHYLPREDNISOLONE
     Indication: Premedication
     Dosage: FREQUENCY TEXT:ONCE BEFORE INFUSION
     Route: 042
     Dates: start: 20200204, end: 20200204
  21. METHYLPREDNISOLONE [Concomitant]
     Active Substance: METHYLPREDNISOLONE
     Dosage: FREQUENCY TEXT:ONCE BEFORE INFUSION
     Route: 042
     Dates: start: 20200221, end: 20200221
  22. TRIMETON [Concomitant]
     Active Substance: CHLORPHENIRAMINE MALEATE
     Indication: Premedication
     Dosage: FREQUENCY TEXT:ONCE BEFORE INFUSION
     Route: 030
     Dates: start: 20200204, end: 20200204
  23. TRIMETON [Concomitant]
     Active Substance: CHLORPHENIRAMINE MALEATE
     Dosage: FREQUENCY TEXT:ONCE BEFORE INFUSION
     Route: 030
     Dates: start: 20200221, end: 20200221
  24. CETIRIZINE HYDROCHLORIDE [Concomitant]
     Active Substance: CETIRIZINE HYDROCHLORIDE
     Dates: start: 20200204
  25. GLATIRAMER ACETATE [Concomitant]
     Active Substance: GLATIRAMER ACETATE
     Dates: start: 201604

REACTIONS (1)
  - Mastitis [Recovered/Resolved]

NARRATIVE: CASE EVENT DATE: 20200216
